FAERS Safety Report 5685301-1 (Version None)
Quarter: 2008Q1

REPORT INFORMATION
  Report Type: 
  Country: None (occurrence: None)
  Receive Date: 20080328
  Receipt Date: 20080318
  Transmission Date: 20080703
  Serious: Yes (Other)
  Sender: FDA-Public Use
  Company Number: AR-PFIZER INC-2008022623

PATIENT
  Sex: Female
  Weight: 63 kg

DRUGS (2)
  1. CHAMPIX [Suspect]
     Indication: SMOKING CESSATION THERAPY
     Route: 048
  2. RIVOTRIL [Concomitant]
     Route: 048

REACTIONS (2)
  - HORMONE LEVEL ABNORMAL [None]
  - MASTITIS [None]
